FAERS Safety Report 10013917 (Version 4)
Quarter: 2016Q3

REPORT INFORMATION
  Report Type: Spontaneous
  Country: CA (occurrence: CA)
  Receive Date: 20140316
  Receipt Date: 20160708
  Transmission Date: 20161108
  Serious: Yes (Death, Hospitalization)
  Sender: FDA-Public Use
  Company Number: CA-CELGENEUS-028-21880-13080655

PATIENT
  Age: 69 Year
  Sex: Male
  Weight: 72.1 kg

DRUGS (56)
  1. ASA [Concomitant]
     Active Substance: ASPIRIN
     Indication: PRODUCT USED FOR UNKNOWN INDICATION
     Route: 065
     Dates: start: 20120309, end: 20120330
  2. FRAGMIN [Concomitant]
     Active Substance: DALTEPARIN SODIUM
     Indication: ADVERSE EVENT
     Route: 065
     Dates: start: 20120510
  3. KCL [Concomitant]
     Active Substance: POTASSIUM CHLORIDE
     Indication: ADVERSE EVENT
     Route: 065
     Dates: start: 20120820, end: 20120820
  4. DILAUDID [Concomitant]
     Active Substance: HYDROMORPHONE HYDROCHLORIDE
     Indication: ADVERSE EVENT
     Route: 065
     Dates: start: 20130730, end: 20130810
  5. REVLIMID [Suspect]
     Active Substance: LENALIDOMIDE
     Indication: PLASMA CELL MYELOMA
     Route: 048
     Dates: start: 20120309
  6. HYDROMORPHONE HCL [Concomitant]
     Active Substance: HYDROMORPHONE HYDROCHLORIDE
     Indication: ADVERSE EVENT
     Route: 065
     Dates: start: 20120404
  7. CYCLOBENZAPRINE [Concomitant]
     Active Substance: CYCLOBENZAPRINE
     Indication: ADVERSE EVENT
     Route: 065
     Dates: start: 20120710, end: 20120801
  8. FLOVENT [Concomitant]
     Active Substance: FLUTICASONE PROPIONATE
     Indication: ADVERSE EVENT
     Route: 065
     Dates: start: 20120710, end: 20120801
  9. SENEKOT [Concomitant]
     Indication: PRODUCT USED FOR UNKNOWN INDICATION
     Route: 065
     Dates: start: 200803, end: 20120821
  10. DEXAMETHASONE. [Suspect]
     Active Substance: DEXAMETHASONE
     Route: 041
     Dates: start: 20120309
  11. VANCOMYCIN [Concomitant]
     Active Substance: VANCOMYCIN
     Route: 065
     Dates: start: 20120726, end: 20120804
  12. NORMAL SALINE [Concomitant]
     Active Substance: SODIUM CHLORIDE
     Route: 065
     Dates: start: 20120725, end: 20120725
  13. FLAGYL [Concomitant]
     Active Substance: METRONIDAZOLE\METRONIDAZOLE HYDROCHLORIDE
     Route: 065
     Dates: start: 20120821, end: 20120824
  14. LEVOFLOXACIN. [Concomitant]
     Active Substance: LEVOFLOXACIN
     Route: 065
     Dates: start: 20130315, end: 20130323
  15. HYDROMORPH CONTIN [Concomitant]
     Active Substance: HYDROMORPHONE
     Route: 065
     Dates: start: 20120827
  16. QUETIAPINE. [Concomitant]
     Active Substance: QUETIAPINE
     Indication: ADVERSE EVENT
     Route: 065
     Dates: start: 20130803, end: 20130810
  17. MG OXIDE [Concomitant]
     Indication: ADVERSE EVENT
     Route: 065
     Dates: start: 20130803, end: 20130810
  18. HALOPERIDOL. [Concomitant]
     Active Substance: HALOPERIDOL
     Indication: PRODUCT USED FOR UNKNOWN INDICATION
     Route: 065
     Dates: start: 20130809, end: 20130809
  19. SCOPOLAMINE [Concomitant]
     Active Substance: SCOPOLAMINE
     Indication: PRODUCT USED FOR UNKNOWN INDICATION
     Route: 065
     Dates: start: 20130809, end: 20130810
  20. DEXAMETHASONE. [Suspect]
     Active Substance: DEXAMETHASONE
     Route: 041
     Dates: start: 20130627
  21. VANCOMYCIN [Concomitant]
     Active Substance: VANCOMYCIN
     Route: 065
     Dates: start: 20120504, end: 20120619
  22. NORMAL SALINE [Concomitant]
     Active Substance: SODIUM CHLORIDE
     Route: 065
     Dates: start: 20120727, end: 20120727
  23. LEVOFLOXACIN. [Concomitant]
     Active Substance: LEVOFLOXACIN
     Indication: ADVERSE EVENT
     Route: 065
     Dates: start: 20120819, end: 20120821
  24. HYDROMORPH CONTIN [Concomitant]
     Active Substance: HYDROMORPHONE
     Indication: ADVERSE EVENT
     Route: 065
     Dates: start: 200803, end: 20120823
  25. SENNOSIDES. [Concomitant]
     Active Substance: SENNOSIDES
     Indication: ADVERSE EVENT
     Route: 065
     Dates: start: 20130730, end: 20130810
  26. HYDROMORPHONE HCL [Concomitant]
     Active Substance: HYDROMORPHONE HYDROCHLORIDE
     Route: 065
     Dates: start: 20120819
  27. VANCOMYCIN [Concomitant]
     Active Substance: VANCOMYCIN
     Indication: ADVERSE EVENT
     Route: 065
     Dates: start: 20120302, end: 20120317
  28. VANCOMYCIN [Concomitant]
     Active Substance: VANCOMYCIN
     Route: 065
     Dates: start: 20120821, end: 20121021
  29. NORMAL SALINE [Concomitant]
     Active Substance: SODIUM CHLORIDE
     Route: 065
     Dates: start: 20120819, end: 20120819
  30. TYLENOL [Concomitant]
     Active Substance: ACETAMINOPHEN
     Indication: ADVERSE EVENT
     Route: 065
     Dates: start: 20120725, end: 20120726
  31. K-TEN [Concomitant]
     Indication: ADVERSE EVENT
     Route: 065
     Dates: start: 20130802, end: 20130810
  32. CEFUROXIME. [Concomitant]
     Active Substance: CEFUROXIME
     Indication: PRODUCT USED FOR UNKNOWN INDICATION
     Route: 065
     Dates: start: 20130805, end: 20130809
  33. DEXAMETHASONE. [Suspect]
     Active Substance: DEXAMETHASONE
     Indication: PLASMA CELL MYELOMA
     Route: 048
     Dates: start: 20120309
  34. HYDROMORPHONE HCL [Concomitant]
     Active Substance: HYDROMORPHONE HYDROCHLORIDE
     Route: 065
     Dates: start: 20120823, end: 20120827
  35. FLAGYL [Concomitant]
     Active Substance: METRONIDAZOLE\METRONIDAZOLE HYDROCHLORIDE
     Indication: ADVERSE EVENT
     Route: 065
     Dates: start: 20120504, end: 20120511
  36. MGSO4 [Concomitant]
     Active Substance: MAGNESIUM SULFATE
     Indication: ADVERSE EVENT
     Route: 065
     Dates: start: 20120830, end: 20120830
  37. REVLIMID [Suspect]
     Active Substance: LENALIDOMIDE
     Route: 048
     Dates: start: 20130627
  38. ELOTUZUMAB. [Suspect]
     Active Substance: ELOTUZUMAB
     Indication: PLASMA CELL MYELOMA
     Route: 041
     Dates: start: 20120309
  39. DEXAMETHASONE. [Suspect]
     Active Substance: DEXAMETHASONE
     Route: 048
     Dates: start: 20130627
  40. PAMIDRONATE [Concomitant]
     Active Substance: PAMIDRONATE DISODIUM
     Indication: PRODUCT USED FOR UNKNOWN INDICATION
     Route: 065
     Dates: start: 201202
  41. NORMAL SALINE [Concomitant]
     Active Substance: SODIUM CHLORIDE
     Indication: ADVERSE EVENT
     Route: 065
     Dates: start: 20120504, end: 20120517
  42. NORMAL SALINE [Concomitant]
     Active Substance: SODIUM CHLORIDE
     Route: 065
     Dates: start: 20130731, end: 20130810
  43. METOPROLOL. [Concomitant]
     Active Substance: METOPROLOL
     Indication: ADVERSE EVENT
     Route: 065
     Dates: start: 20120830
  44. CEFTRIAXONE. [Concomitant]
     Active Substance: CEFTRIAXONE
     Indication: ADVERSE EVENT
     Route: 065
     Dates: start: 20120822, end: 20120827
  45. OXYGEN. [Concomitant]
     Active Substance: OXYGEN
     Indication: ADVERSE EVENT
     Route: 065
     Dates: start: 20120820, end: 20120820
  46. LACTULOSE. [Concomitant]
     Active Substance: LACTULOSE
     Indication: ADVERSE EVENT
     Route: 065
     Dates: start: 20130730, end: 20130810
  47. THIAMINE. [Concomitant]
     Active Substance: THIAMINE
     Indication: ADVERSE EVENT
     Route: 065
     Dates: start: 20130805, end: 20130810
  48. DEXAMETHASONE. [Suspect]
     Active Substance: DEXAMETHASONE
     Route: 048
     Dates: start: 20130627
  49. POTASSIUM [Concomitant]
     Active Substance: POTASSIUM
     Indication: ADVERSE EVENT
     Route: 065
     Dates: start: 20120820, end: 20120820
  50. AZITHROMYCIN ANHYDROUS. [Concomitant]
     Active Substance: AZITHROMYCIN ANHYDROUS
     Indication: ADVERSE EVENT
     Route: 065
     Dates: start: 20120822, end: 20120828
  51. MAGNESIUM BOLUS [Concomitant]
     Indication: ADVERSE EVENT
     Route: 040
     Dates: start: 20120821, end: 20120821
  52. D5/0.5NS/KCL [Concomitant]
     Indication: ADVERSE EVENT
     Route: 065
     Dates: start: 20120820, end: 20120825
  53. CEPHALEXIN. [Concomitant]
     Active Substance: CEPHALEXIN
     Indication: PRODUCT USED FOR UNKNOWN INDICATION
     Route: 065
     Dates: start: 20120127, end: 20120307
  54. MORPHINE [Concomitant]
     Active Substance: MORPHINE
     Indication: PRODUCT USED FOR UNKNOWN INDICATION
     Route: 065
     Dates: start: 20130809, end: 20130809
  55. LORAZEPAM. [Concomitant]
     Active Substance: LORAZEPAM
     Indication: ADVERSE EVENT
     Route: 065
     Dates: start: 20130809, end: 20130810
  56. G-CSF [Concomitant]
     Active Substance: GRANULOCYTE COLONY-STIMULATING FACTOR NOS
     Indication: ADVERSE EVENT
     Route: 065
     Dates: start: 20120323, end: 20130810

REACTIONS (2)
  - Asthenia [Not Recovered/Not Resolved]
  - Plasma cell myeloma [Fatal]

NARRATIVE: CASE EVENT DATE: 20130627
